FAERS Safety Report 8622226-3 (Version None)
Quarter: 2012Q3

REPORT INFORMATION
  Report Type: 
  Country: None (occurrence: None)
  Receive Date: 20120827
  Receipt Date: 20120821
  Transmission Date: 20120928
  Serious: Yes (Other)
  Sender: FDA-Public Use
  Company Number: US-AMGEN-USASP2012046355

PATIENT
  Age: 71 Year
  Sex: Female
  Weight: 53.515 kg

DRUGS (3)
  1. ENBREL [Suspect]
     Indication: RHEUMATOID ARTHRITIS
     Dosage: 50 MG, QWK
     Route: 058
     Dates: start: 20040612
  2. PLAQUENIL [Concomitant]
     Dosage: 200 MG, QD
     Route: 048
     Dates: start: 20070101
  3. MELOXICAM [Concomitant]
     Indication: RHEUMATOID ARTHRITIS
     Dosage: 7.5 MG, QD
     Route: 048
     Dates: start: 20070101

REACTIONS (1)
  - BREAST CANCER [None]
